FAERS Safety Report 8332129-X (Version None)
Quarter: 2012Q2

REPORT INFORMATION
  Report Type: 
  Country: None (occurrence: None)
  Receive Date: 20120502
  Receipt Date: 20120419
  Transmission Date: 20120825
  Serious: Yes (Death, Life-Threatening, Hospitalization, Other)
  Sender: FDA-Public Use
  Company Number: US-MYLANLABS-2009AC000060

PATIENT
  Age: 84 Year
  Sex: Male
  Weight: 70.31 kg

DRUGS (23)
  1. RYTHMOL [Concomitant]
  2. LASIX [Concomitant]
  3. DIGOXIN [Suspect]
     Route: 048
     Dates: start: 20070401, end: 20081201
  4. DUONEB [Concomitant]
  5. NORVASC [Concomitant]
  6. ZYVOX [Concomitant]
  7. PROTONIX [Concomitant]
  8. DIOVAN [Concomitant]
  9. FERATAB [Concomitant]
  10. LEVAQUIN [Concomitant]
  11. POTASSIUM CHLORIDE [Concomitant]
  12. FOLIC ACID [Concomitant]
  13. LISINOPRIL [Concomitant]
  14. ZOSYN [Concomitant]
  15. PREDNISONE [Concomitant]
  16. AMOXICILLIN [Concomitant]
  17. NOVOLIN 70/30 [Concomitant]
  18. BENAZEPRIL HYDROCHLORIDE [Concomitant]
  19. FUROSEMIDE [Concomitant]
  20. COREG [Concomitant]
  21. SOLU-MEDROL [Concomitant]
  22. MUCINEX [Concomitant]
  23. VANCOMYCIN [Concomitant]

REACTIONS (55)
  - RASH [None]
  - RENAL FAILURE ACUTE [None]
  - CHRONIC OBSTRUCTIVE PULMONARY DISEASE [None]
  - GLOMERULONEPHRITIS [None]
  - ARTERIOSCLEROSIS [None]
  - BREATH SOUNDS ABNORMAL [None]
  - CONTUSION [None]
  - LUNG INFECTION PSEUDOMONAL [None]
  - RENAL FAILURE CHRONIC [None]
  - CARDIAC VALVE DISEASE [None]
  - CENTRAL OBESITY [None]
  - CONJUNCTIVAL OEDEMA [None]
  - RHONCHI [None]
  - ILL-DEFINED DISORDER [None]
  - HYPOXIA [None]
  - HYPOTENSION [None]
  - ERYTHEMA [None]
  - GASTROINTESTINAL TUBE INSERTION [None]
  - LUNG INFILTRATION [None]
  - ULTRASOUND SCAN ABNORMAL [None]
  - VASCULITIS [None]
  - INJURY [None]
  - BENIGN PROSTATIC HYPERPLASIA [None]
  - THROMBOCYTOPENIA [None]
  - CARDIOGENIC SHOCK [None]
  - LEFT VENTRICULAR HYPERTROPHY [None]
  - CENTRAL VENOUS CATHETERISATION [None]
  - CHEST X-RAY ABNORMAL [None]
  - LIVER FUNCTION TEST ABNORMAL [None]
  - PAIN IN EXTREMITY [None]
  - RESPIRATORY FAILURE [None]
  - ECHOCARDIOGRAM ABNORMAL [None]
  - DEATH [None]
  - ANAEMIA [None]
  - DIVERTICULUM [None]
  - HYPERKALAEMIA [None]
  - LACTIC ACIDOSIS [None]
  - DYSPNOEA [None]
  - PURPURA [None]
  - ECONOMIC PROBLEM [None]
  - ATRIAL FIBRILLATION [None]
  - HYPERTENSION [None]
  - ATELECTASIS [None]
  - PLEURAL EFFUSION [None]
  - SEPTIC SHOCK [None]
  - PROSTATOMEGALY [None]
  - TRANSFUSION [None]
  - PNEUMONIA [None]
  - LEUKOCYTOCLASTIC VASCULITIS [None]
  - MECHANICAL VENTILATION [None]
  - SEPSIS [None]
  - BLISTER [None]
  - COMPUTERISED TOMOGRAM ABNORMAL [None]
  - HIATUS HERNIA [None]
  - STEROID THERAPY [None]
